FAERS Safety Report 7968093-2 (Version None)
Quarter: 2011Q4

REPORT INFORMATION
  Report Type: 
  Country: None (occurrence: None)
  Receive Date: 20111121
  Receipt Date: 20110822
  Transmission Date: 20120403
  Serious: No
  Sender: FDA-Public Use
  Company Number: 1000023098

PATIENT
  Age: 26 Year
  Sex: Female

DRUGS (2)
  1. BIRTH CONTROL (NOS) (BIRTH CONTROL (NOS)) (BIRTH CONTROL (NOS)) [Concomitant]
  2. VIIBRYD [Suspect]
     Indication: ANXIETY
     Dosage: 10 MG (10 MG, 1 IN 1 D), ORAL
     Route: 048
     Dates: start: 20110815

REACTIONS (4)
  - EYE MOVEMENT DISORDER [None]
  - TACHYPHRENIA [None]
  - HALLUCINATION [None]
  - FEELING ABNORMAL [None]
